FAERS Safety Report 20085761 (Version 3)
Quarter: 2021Q4

REPORT INFORMATION
  Report Type: Spontaneous
  Country: US (occurrence: US)
  Receive Date: 20211118
  Receipt Date: 20211230
  Transmission Date: 20220303
  Serious: Yes (Other)
  Sender: FDA-Public Use
  Company Number: US-PFIZER INC-202101419162

PATIENT
  Age: 73 Year
  Sex: Male

DRUGS (3)
  1. XELJANZ XR [Suspect]
     Active Substance: TOFACITINIB CITRATE
     Dosage: 11 MG, UNK
  2. ENBREL [Suspect]
     Active Substance: ETANERCEPT
     Dosage: UNK
     Dates: start: 201801
  3. ENBREL [Suspect]
     Active Substance: ETANERCEPT
     Dosage: UNK
     Dates: start: 202001

REACTIONS (9)
  - Thrombocytopenia [Unknown]
  - Non-alcoholic steatohepatitis [Unknown]
  - COVID-19 [Unknown]
  - Nodule [Unknown]
  - Chronic obstructive pulmonary disease [Unknown]
  - White blood cell count decreased [Unknown]
  - Platelet count decreased [Unknown]
  - Liver disorder [Unknown]
  - Splenomegaly [Unknown]

NARRATIVE: CASE EVENT DATE: 20201101
